FAERS Safety Report 22332230 (Version 2)
Quarter: 2024Q4

REPORT INFORMATION
  Report Type: Report from Study
  Country: US (occurrence: US)
  Receive Date: 20230517
  Receipt Date: 20241113
  Transmission Date: 20250115
  Serious: Yes (Life-Threatening, Hospitalization, Other)
  Sender: TAKEDA
  Company Number: US-TAKEDA-ALL1-2010-02660

PATIENT
  Age: 46 Year
  Sex: Male

DRUGS (2)
  1. VELAGLUCERASE ALFA [Suspect]
     Active Substance: VELAGLUCERASE ALFA
     Indication: Gaucher^s disease
     Dosage: UNK, 2/WEEK
     Dates: start: 20100301
  2. VELAGLUCERASE ALFA [Suspect]
     Active Substance: VELAGLUCERASE ALFA
     Dosage: UNK, Q2WEEKS
     Dates: start: 20100430

REACTIONS (6)
  - Pneumonia [Recovered/Resolved]
  - Sepsis [Recovered/Resolved]
  - Blood pressure increased [Recovered/Resolved]
  - Fatigue [Recovered/Resolved]
  - Infusion related reaction [Recovered/Resolved]
  - Product dose omission issue [Not Recovered/Not Resolved]

NARRATIVE: CASE EVENT DATE: 20100430
